FAERS Safety Report 5663879-1 (Version None)
Quarter: 2008Q1

REPORT INFORMATION
  Report Type: 
  Country: None (occurrence: None)
  Receive Date: 20080311
  Receipt Date: 20080304
  Transmission Date: 20080703
  Serious: Yes (Hospitalization, Other)
  Sender: FDA-Public Use
  Company Number: SPV1-2008-00290

PATIENT
  Age: 64 Year
  Sex: Female
  Weight: 60.5 kg

DRUGS (4)
  1. FOSRENOL [Suspect]
     Indication: HYPERPHOSPHATAEMIA
     Dosage: 1 D, 1X/DAY: QD, ORAL
     Route: 048
     Dates: start: 20071130, end: 20071218
  2. CALCIUM CARBONATE            (CALCIUM CARBONATE) [Concomitant]
  3. D-CURE             (COLECALCIFEROL) [Concomitant]
  4. LORAZEPAM [Concomitant]

REACTIONS (4)
  - BLOOD CREATININE INCREASED [None]
  - BLOOD SODIUM DECREASED [None]
  - DIABETES MELLITUS INADEQUATE CONTROL [None]
  - STUPOR [None]
